FAERS Safety Report 5903608-7 (Version None)
Quarter: 2008Q3

REPORT INFORMATION
  Report Type: 
  Country: None (occurrence: None)
  Receive Date: 20080930
  Receipt Date: 20080918
  Transmission Date: 20090109
  Serious: Yes (Hospitalization)
  Sender: FDA-Public Use
  Company Number: FR-PFIZER INC-2008079057

PATIENT
  Sex: Male

DRUGS (4)
  1. PREGABALIN [Suspect]
     Indication: PAIN
     Route: 048
     Dates: start: 20080830, end: 20080901
  2. GABAPENTIN [Suspect]
     Indication: PAIN
     Route: 048
     Dates: start: 20080830, end: 20080901
  3. AMITRIPTYLINE HCL [Suspect]
     Indication: PAIN
     Route: 042
     Dates: start: 20080830, end: 20080901
  4. MORPHINE SULFATE INJ [Suspect]
     Indication: PAIN
     Route: 048
     Dates: start: 20080830, end: 20080901

REACTIONS (1)
  - MYOCLONUS [None]
